FAERS Safety Report 9249236 (Version 1)
Quarter: 2013Q2

REPORT INFORMATION
  Report Type: Spontaneous
  Country: US (occurrence: US)
  Receive Date: 20130423
  Receipt Date: 20130423
  Transmission Date: 20140414
  Serious: No
  Sender: FDA-Public Use
  Company Number: US-ASTRAZENECA-2013SE24454

PATIENT
  Age: 850 Month
  Sex: Female
  Weight: 86.2 kg

DRUGS (12)
  1. NEXIUM [Suspect]
     Indication: GASTROOESOPHAGEAL REFLUX DISEASE
     Route: 048
     Dates: start: 2002, end: 201303
  2. PRILOSEC [Suspect]
     Route: 048
  3. PRILOSEC [Suspect]
     Dosage: OMEPRAZOLE.
     Route: 048
  4. VYTORIN [Concomitant]
     Indication: BLOOD CHOLESTEROL ABNORMAL
  5. LEVOTHYROXINE [Concomitant]
  6. FISH OIL [Concomitant]
  7. VIT D [Concomitant]
  8. RANITIDINE [Concomitant]
  9. GLIPIZIDEACTOSE [Concomitant]
  10. DIOVAN [Concomitant]
  11. AMLODIPINE [Concomitant]
  12. ASA [Concomitant]

REACTIONS (10)
  - Gastric disorder [Unknown]
  - Liver disorder [Unknown]
  - Blood glucose increased [Unknown]
  - Blood cholesterol increased [Unknown]
  - Hypertension [Unknown]
  - Dysphagia [Unknown]
  - Drug hypersensitivity [Unknown]
  - Hepatic pain [Unknown]
  - Abdominal pain upper [Unknown]
  - Drug dose omission [Unknown]
